FAERS Safety Report 7071908-6 (Version None)
Quarter: 2010Q4

REPORT INFORMATION
  Report Type: 
  Country: None (occurrence: None)
  Receive Date: 20101029
  Receipt Date: 20091103
  Transmission Date: 20110411
  Serious: No
  Sender: FDA-Public Use
  Company Number: A0814747A

PATIENT
  Age: 74 Year
  Sex: Female

DRUGS (13)
  1. ADVAIR DISKUS 100/50 [Suspect]
     Indication: CHRONIC OBSTRUCTIVE PULMONARY DISEASE
     Dosage: 1PUFF TWICE PER DAY
     Route: 055
     Dates: start: 20090201, end: 20090208
  2. PROAIR HFA [Concomitant]
  3. LEVOTHYROXINE [Concomitant]
  4. ESTRADIOL [Concomitant]
  5. FOSAMAX [Concomitant]
  6. BONE-UP [Concomitant]
  7. COQ10 [Concomitant]
  8. HERBAL MEDICATION [Concomitant]
  9. COD LIVER OIL [Concomitant]
  10. MULTI-VITAMIN [Concomitant]
  11. RESTASIS [Concomitant]
  12. COLACE [Concomitant]
  13. STOOL SOFTENER [Concomitant]

REACTIONS (3)
  - APHONIA [None]
  - CANDIDIASIS [None]
  - DYSPHONIA [None]
